FAERS Safety Report 4787516-3 (Version None)
Quarter: 2005Q4

REPORT INFORMATION
  Report Type: 
  Country: None (occurrence: None)
  Receive Date: 20051004
  Receipt Date: 20050921
  Transmission Date: 20060501
  Serious: Yes (Hospitalization)
  Sender: FDA-Public Use
  Company Number: JP-JNJFOC-20050901795

PATIENT
  Sex: Male
  Weight: 60 kg

DRUGS (23)
  1. REMICADE [Suspect]
     Route: 042
  2. REMICADE [Suspect]
     Route: 042
  3. REMICADE [Suspect]
     Route: 042
  4. REMICADE [Suspect]
     Route: 042
  5. REMICADE [Suspect]
     Route: 042
  6. REMICADE [Suspect]
     Route: 042
  7. REMICADE [Suspect]
     Route: 042
  8. REMICADE [Suspect]
     Route: 042
  9. REMICADE [Suspect]
     Indication: RHEUMATOID ARTHRITIS
     Route: 042
  10. RHEUMATREX [Suspect]
     Indication: RHEUMATOID ARTHRITIS
     Route: 048
  11. PREDONINE [Suspect]
     Indication: RHEUMATOID ARTHRITIS
     Route: 048
  12. BREDININ [Concomitant]
     Indication: RHEUMATOID ARTHRITIS
     Route: 048
  13. VOLTAREN [Concomitant]
     Indication: RHEUMATOID ARTHRITIS
     Route: 048
  14. ADRENAL HORMONE PREPARATIONS [Concomitant]
     Indication: RHEUMATOID ARTHRITIS
     Route: 065
  15. NORVASC [Concomitant]
     Indication: HYPERTENSION
     Route: 048
  16. DIOVAN [Concomitant]
     Indication: HYPERTENSION
     Route: 048
  17. MUCOSTA [Concomitant]
     Route: 048
  18. GASTER D [Concomitant]
     Route: 048
  19. ISCOTIN [Concomitant]
     Indication: ANTIBIOTIC PROPHYLAXIS
     Route: 048
  20. ALFAROL [Concomitant]
     Route: 048
  21. BONALON [Concomitant]
     Route: 048
  22. TAKEPRON [Concomitant]
     Route: 048
  23. ULCERLMIN [Concomitant]
     Route: 048

REACTIONS (3)
  - DEVICE RELATED INFECTION [None]
  - KNEE ARTHROPLASTY [None]
  - STREPTOCOCCAL INFECTION [None]
